FAERS Safety Report 8196849-2 (Version None)
Quarter: 2012Q1

REPORT INFORMATION
  Report Type: 
  Country: None (occurrence: None)
  Receive Date: 20120309
  Receipt Date: 20120305
  Transmission Date: 20120608
  Serious: Yes (Other)
  Sender: FDA-Public Use
  Company Number: US-PFIZER INC-2012012836

PATIENT
  Sex: Male

DRUGS (12)
  1. COLACE [Concomitant]
     Dosage: 100 MG, 2X/DAY
     Route: 048
  2. DECADRON [Concomitant]
     Dosage: 4 MG, Q 8 HOURS
     Route: 048
  3. VICODIN [Concomitant]
     Dosage: 5/500 Q 12 HOURS AS NEEDED
     Route: 048
  4. ISOPTO TEARS [Concomitant]
     Dosage: TWO DROPS AS NEEDED
  5. MAGNESIUM OXIDE [Concomitant]
     Dosage: 400 MG, 2X/DAY
     Route: 048
  6. SUTENT [Suspect]
     Indication: RENAL CANCER
     Dosage: 50 MG, 1X/DAY X 28 DAYS (4 WKS ON, 2 WKS OFF)
     Route: 048
     Dates: start: 20111219, end: 20120102
  7. SUTENT [Suspect]
     Indication: METASTATIC RENAL CELL CARCINOMA
  8. PROTONIX [Concomitant]
     Dosage: 40 MG, DAILY
     Route: 048
  9. KEPPRA [Concomitant]
     Dosage: 500 MG, 3X/DAY
     Route: 048
  10. POTASSIUM CHLORIDE [Concomitant]
     Dosage: 10 MILLIEQUIVALENT BY MOUTH DAILY
     Route: 048
  11. PROVENTIL GENTLEHALER [Concomitant]
     Dosage: TWO INHALATIONS AS NEEDED
  12. DURATEARS [Concomitant]
     Dosage: ONE APPLICATION AS NEEDED

REACTIONS (4)
  - CONFUSIONAL STATE [None]
  - CONVULSION [None]
  - MUSCULAR WEAKNESS [None]
  - HYPOAESTHESIA [None]
